FAERS Safety Report 17596899 (Version 2)
Quarter: 2021Q1

REPORT INFORMATION
  Report Type: Spontaneous
  Country: AU (occurrence: AU)
  Receive Date: 20200330
  Receipt Date: 20210311
  Transmission Date: 20210419
  Serious: Yes (Life-Threatening, Hospitalization, Other)
  Sender: FDA-Public Use
  Company Number: AU-LUPIN PHARMACEUTICALS INC.-2020-01502

PATIENT
  Age: 42 Year
  Sex: Female

DRUGS (1)
  1. LEVONORGESTREL AND ETHINYL ESTRADIOL TABLETS [Suspect]
     Active Substance: ETHINYL ESTRADIOL\LEVONORGESTREL
     Indication: ORAL CONTRACEPTION
     Dosage: UNK
     Route: 048

REACTIONS (6)
  - Pulmonary embolism [Recovered/Resolved]
  - Embolism venous [Recovered/Resolved]
  - Paradoxical embolism [Recovered/Resolved]
  - Peripheral ischaemia [Recovered/Resolved]
  - Peripheral artery occlusion [Recovered/Resolved]
  - Deep vein thrombosis [Recovered/Resolved]
